FAERS Safety Report 23830512 (Version 1)
Quarter: 2024Q2

REPORT INFORMATION
  Report Type: Spontaneous
  Country: US (occurrence: US)
  Receive Date: 20240508
  Receipt Date: 20240508
  Transmission Date: 20240715
  Serious: No
  Sender: FDA-Public Use
  Company Number: USA--2023-US-001593

PATIENT
  Age: 57 Year
  Sex: Male

DRUGS (2)
  1. BRIMONIDINE TARTRATE [Suspect]
     Active Substance: BRIMONIDINE TARTRATE
     Dosage: 1 GGT OU BID
     Dates: start: 202310, end: 202311
  2. Latanoprost OS [Concomitant]

REACTIONS (2)
  - Eye pruritus [Unknown]
  - Periorbital swelling [Unknown]

NARRATIVE: CASE EVENT DATE: 20231001
